FAERS Safety Report 5199596-4 (Version None)
Quarter: 2007Q1

REPORT INFORMATION
  Report Type: 
  Country: None (occurrence: None)
  Receive Date: 20070103
  Receipt Date: 20070103
  Transmission Date: 20070707
  Serious: No
  Sender: FDA-Public Use
  Company Number: None

PATIENT
  Age: 44 Year
  Sex: Female
  Weight: 74.8435 kg

DRUGS (1)
  1. ZICAM NO DRIP LIQUID NASAL GEL   ZINCUM GLUCONICUM 2X   MATRIXX INITIA [Suspect]
     Indication: SNEEZING
     Dosage: 1 SPRAY   1X @ 4HRS  NASAL  (DURATION: USED INCORRECTLY ONCE)
     Route: 045
     Dates: start: 20061222, end: 20061222

REACTIONS (12)
  - ANOSMIA [None]
  - DYSPEPSIA [None]
  - EAR DISCOMFORT [None]
  - EYE IRRITATION [None]
  - HYPOGEUSIA [None]
  - INCORRECT ROUTE OF DRUG ADMINISTRATION [None]
  - MALAISE [None]
  - NASAL DISCOMFORT [None]
  - NASAL DISORDER [None]
  - PAIN [None]
  - PHARMACEUTICAL PRODUCT COMPLAINT [None]
  - THROAT IRRITATION [None]
